FAERS Safety Report 13200097 (Version 1)
Quarter: 2017Q1

REPORT INFORMATION
  Report Type: Spontaneous
  Country: US (occurrence: US)
  Receive Date: 20170208
  Receipt Date: 20170208
  Transmission Date: 20170428
  Serious: Yes (Hospitalization, Other)
  Sender: FDA-Public Use
  Company Number: US-ELI_LILLY_AND_COMPANY-US201702000881

PATIENT
  Sex: Female

DRUGS (3)
  1. TALTZ [Suspect]
     Active Substance: IXEKIZUMAB
     Dosage: 80 MG, MONTHLY (1/M)
     Route: 065
     Dates: end: 20170104
  2. TALTZ [Suspect]
     Active Substance: IXEKIZUMAB
     Route: 065
  3. TALTZ [Suspect]
     Active Substance: IXEKIZUMAB
     Indication: PSORIASIS
     Dosage: 180 MG, SINGLE
     Route: 065
     Dates: start: 2016

REACTIONS (5)
  - Immune system disorder [Unknown]
  - Fungal infection [Recovered/Resolved]
  - Oesophageal oedema [Unknown]
  - Hypoaesthesia [Unknown]
  - Helicobacter infection [Recovered/Resolved]

NARRATIVE: CASE EVENT DATE: 20170104
